FAERS Safety Report 21684447 (Version 1)
Quarter: 2022Q4

REPORT INFORMATION
  Report Type: Spontaneous
  Country: TR (occurrence: TR)
  Receive Date: 20221205
  Receipt Date: 20221205
  Transmission Date: 20230113
  Serious: Yes (Hospitalization, Other)
  Sender: FDA-Public Use
  Company Number: TR-LUNDBECK-DKLU3055091

PATIENT
  Sex: Female

DRUGS (1)
  1. CITALOPRAM HYDROBROMIDE [Suspect]
     Active Substance: CITALOPRAM HYDROBROMIDE
     Indication: Product used for unknown indication
     Dosage: OVERDOSE: CITALOPRAM 20MG X 12

REACTIONS (5)
  - Pre-eclampsia [Unknown]
  - Suicide attempt [Unknown]
  - Intentional overdose [Unknown]
  - Pregnancy [Unknown]
  - Premature labour [Unknown]
